FAERS Safety Report 20186072 (Version 1)
Quarter: 2021Q4

REPORT INFORMATION
  Report Type: Spontaneous
  Country: US (occurrence: US)
  Receive Date: 20211215
  Receipt Date: 20211215
  Transmission Date: 20220304
  Serious: Yes (Hospitalization)
  Sender: FDA-Public Use
  Company Number: US-JNJFOC-20211211940

PATIENT
  Age: 38 Year
  Sex: Female
  Weight: 55 kg

DRUGS (7)
  1. TYLENOL [Suspect]
     Active Substance: ACETAMINOPHEN
     Indication: Ear pain
     Dosage: TOTAL DOSE OF 36000 MG OF ACETAMINOPHEN (12000 MG PER DAY) OVER A PERIOD OF 3 DAYS
     Route: 065
     Dates: start: 20030406, end: 20030408
  2. PERCOCET [Suspect]
     Active Substance: ACETAMINOPHEN\OXYCODONE HYDROCHLORIDE
     Indication: Ear pain
     Dosage: OXYCODONE HYDROCHLORIDE UNK MG/ACETAMINOPHEN UNK MG
     Route: 065
  3. VICODIN [Suspect]
     Active Substance: ACETAMINOPHEN\HYDROCODONE BITARTRATE
     Indication: Ear pain
     Dosage: HYDROCODONE BITARTRATE/ACETAMINOPHEN
     Route: 065
  4. PREDNISONE [Concomitant]
     Active Substance: PREDNISONE
     Indication: Product used for unknown indication
     Dosage: 60 MG/DAY FOR 2 MONTHS
     Route: 065
     Dates: end: 20030411
  5. ALBUTEROL [Concomitant]
     Active Substance: ALBUTEROL
     Indication: Product used for unknown indication
     Dosage: 10 MG/DAY FOR UNKNOWN DURATION
     Route: 065
     Dates: end: 20030411
  6. ZITHROMAX [Concomitant]
     Active Substance: AZITHROMYCIN DIHYDRATE
     Indication: Product used for unknown indication
     Dosage: 250 MG/DAY FOR 3 DAYS
     Route: 065
     Dates: end: 20030411
  7. METHADONE [Concomitant]
     Active Substance: METHADONE HYDROCHLORIDE
     Indication: Product used for unknown indication
     Dosage: 60 MG/DAY FOR 30 MONTHS
     Route: 065
     Dates: end: 20030411

REACTIONS (12)
  - Acute hepatic failure [Recovered/Resolved]
  - Blood creatinine increased [Recovered/Resolved]
  - Blood urea increased [Recovered/Resolved]
  - Sinus tachycardia [Recovered/Resolved]
  - Electrocardiogram ST segment abnormal [Recovered/Resolved]
  - Electrocardiogram T wave abnormal [Recovered/Resolved]
  - Chest X-ray abnormal [Recovered/Resolved]
  - Encephalitis [Recovered/Resolved]
  - Pseudomonas infection [Recovered/Resolved]
  - Staphylococcal infection [Recovered/Resolved]
  - Product administration error [Recovered/Resolved]
  - Accidental overdose [Recovered/Resolved]
